FAERS Safety Report 21330530 (Version 2)
Quarter: 2022Q4

REPORT INFORMATION
  Report Type: Spontaneous
  Country: US (occurrence: None)
  Receive Date: 20220913
  Receipt Date: 20221220
  Transmission Date: 20230113
  Serious: No
  Sender: FDA-Public Use
  Company Number: 2022A262981

PATIENT
  Sex: Female
  Weight: 106.6 kg

DRUGS (1)
  1. TEZSPIRE [Suspect]
     Active Substance: TEZEPELUMAB-EKKO
     Dosage: 210MG/ML EVERY FOUR WEEKS
     Route: 058

REACTIONS (1)
  - Rash papular [Unknown]
